FAERS Safety Report 5805515-7 (Version None)
Quarter: 2008Q3

REPORT INFORMATION
  Report Type: 
  Country: None (occurrence: None)
  Receive Date: 20080710
  Receipt Date: 20080702
  Transmission Date: 20090109
  Serious: Yes (Other)
  Sender: FDA-Public Use
  Company Number: US-AMGEN-QUU291846

PATIENT
  Sex: Male

DRUGS (2)
  1. ENBREL [Suspect]
     Indication: PSORIATIC ARTHROPATHY
     Route: 058
     Dates: start: 20070401
  2. ENBREL [Suspect]
     Indication: PSORIASIS

REACTIONS (9)
  - ANXIETY [None]
  - ECONOMIC PROBLEM [None]
  - HALLUCINATION [None]
  - INJECTION SITE HAEMORRHAGE [None]
  - INJECTION SITE PAIN [None]
  - INJECTION SITE SWELLING [None]
  - INSOMNIA [None]
  - PERSONALITY DISORDER [None]
  - STRESS [None]
